FAERS Safety Report 24706958 (Version 1)
Quarter: 2024Q4

REPORT INFORMATION
  Report Type: Report from Study
  Country: IT (occurrence: IT)
  Receive Date: 20241206
  Receipt Date: 20241206
  Transmission Date: 20250115
  Serious: Yes (Death, Other)
  Sender: PFIZER
  Company Number: IT-SEATTLE GENETICS-2015SGN00567

PATIENT

DRUGS (1)
  1. ADCETRIS [Suspect]
     Active Substance: BRENTUXIMAB VEDOTIN
     Indication: Hodgkin^s disease
     Dosage: UNK, EVERY 3 WEEKS, MEDIAN OF 6 CYCLES (RANGE 4-7)
     Route: 042

REACTIONS (1)
  - Epstein-Barr virus infection reactivation [Fatal]
